FAERS Safety Report 8248641-8 (Version None)
Quarter: 2012Q1

REPORT INFORMATION
  Report Type: 
  Country: None (occurrence: None)
  Receive Date: 20120331
  Receipt Date: 20120320
  Transmission Date: 20120608
  Serious: Yes (Death, Hospitalization)
  Sender: FDA-Public Use
  Company Number: IT-AMGEN-ITASP2011045136

PATIENT
  Age: 65 Year
  Sex: Female

DRUGS (5)
  1. METHOTREXATE [Suspect]
     Dosage: 10 MG, UNK
     Route: 030
     Dates: start: 20040701, end: 20110316
  2. HUMIRA [Suspect]
     Indication: PSORIATIC ARTHROPATHY
     Dosage: 40 MG EVERY 15 DAYS
     Route: 058
     Dates: start: 20100922, end: 20110316
  3. ENBREL [Suspect]
     Indication: PSORIATIC ARTHROPATHY
     Dosage: 50 MG, WEEKLY
     Route: 058
     Dates: start: 20061113, end: 20070523
  4. REMICADE [Suspect]
     Indication: PSORIATIC ARTHROPATHY
     Dosage: 400 MG EVERY 8 WEEKS
     Route: 042
     Dates: start: 20070606, end: 20100805
  5. METHOTREXATE [Suspect]
     Indication: PSORIATIC ARTHROPATHY
     Dosage: 10 MG, EVERY 15 DAYS
     Route: 030
     Dates: start: 20040701, end: 20110316

REACTIONS (2)
  - GASTROINTESTINAL CARCINOMA [None]
  - METASTASES TO PERITONEUM [None]
